FAERS Safety Report 9585207 (Version 1)
Quarter: 2013Q4

REPORT INFORMATION
  Report Type: Spontaneous
  Country: US (occurrence: US)
  Receive Date: 20131002
  Receipt Date: 20131002
  Transmission Date: 20140711
  Serious: No
  Sender: FDA-Public Use
  Company Number: US-AMGEN-USASP2013062572

PATIENT
  Age: 70 Year
  Sex: Female
  Weight: 82.54 kg

DRUGS (14)
  1. ENBREL [Suspect]
     Indication: PRODUCT USED FOR UNKNOWN INDICATION
     Dosage: 50 MG, QWK
     Route: 058
  2. SYNTHROID [Concomitant]
     Dosage: 25 MUG, UNK
  3. NEXIUM                             /01479302/ [Concomitant]
     Dosage: 20 MG, UNK
  4. CRESTOR [Concomitant]
     Dosage: 10 MG, UNK
  5. ATIVAN [Concomitant]
     Dosage: 0.5 MG, UNK
  6. ASPIRINA ADULTOS [Concomitant]
     Dosage: 81 MG, UNK
  7. LEXAPRO [Concomitant]
     Dosage: 5 MG, UNK
  8. IRON [Concomitant]
     Dosage: UNK
  9. FOLIC ACID [Concomitant]
     Dosage: UNK
  10. VITAMIN D                          /00107901/ [Concomitant]
     Dosage: 400 UNIT, UNK
  11. CENTRUM SILVER ADULTS 50+ [Concomitant]
     Dosage: UNK
  12. VITAMIN B 12 [Concomitant]
     Dosage: 1000 MUG, UNK
  13. PRESERVISION AREDS [Concomitant]
     Dosage: UNK
  14. LORTAB                             /00607101/ [Concomitant]
     Dosage: 2.5 UNK, 2.5 500

REACTIONS (1)
  - Oral herpes [Unknown]
